FAERS Safety Report 8002113-4 (Version None)
Quarter: 2011Q4

REPORT INFORMATION
  Report Type: 
  Country: None (occurrence: None)
  Receive Date: 20111222
  Receipt Date: 20111213
  Transmission Date: 20120403
  Serious: Yes (Hospitalization, Other)
  Sender: FDA-Public Use
  Company Number: FR-PFIZER INC-2011302852

PATIENT
  Age: 76 Year
  Sex: Male

DRUGS (10)
  1. GENTAMICIN [Suspect]
     Indication: DEVICE RELATED INFECTION
     Dosage: UNK
     Route: 042
     Dates: start: 20111004, end: 20111006
  2. AUGMENTIN [Suspect]
     Indication: DEVICE RELATED INFECTION
     Dosage: UNK
     Dates: start: 20111008, end: 20111011
  3. CEFTAZIDIME SODIUM [Suspect]
     Indication: DEVICE RELATED INFECTION
     Dosage: UNK
     Dates: start: 20111003, end: 20111005
  4. IRBESARTAN [Concomitant]
  5. ZYVOX [Suspect]
     Indication: DEVICE RELATED INFECTION
     Dosage: UNK
     Dates: start: 20111007, end: 20111011
  6. VANCOMYCIN HCL [Suspect]
     Indication: DEVICE RELATED INFECTION
     Dosage: UNK
     Dates: start: 20111003, end: 20111005
  7. TIENAM [Suspect]
     Indication: DEVICE RELATED INFECTION
     Dosage: UNK
     Dates: start: 20111005, end: 20111007
  8. ATORVASTATIN CALCIUM [Concomitant]
  9. VERAPAMIL [Concomitant]
  10. ALDACTAZIDE [Concomitant]

REACTIONS (2)
  - RENAL FAILURE [None]
  - EOSINOPHILIA [None]
